FAERS Safety Report 8419672-X (Version None)
Quarter: 2012Q2

REPORT INFORMATION
  Report Type: 
  Country: None (occurrence: None)
  Receive Date: 20120607
  Receipt Date: 20120529
  Transmission Date: 20120825
  Serious: Yes (Hospitalization, Other)
  Sender: FDA-Public Use
  Company Number: US-ASTRAZENECA-2011SE35608

PATIENT
  Age: 82 Year
  Sex: Female

DRUGS (3)
  1. CRESTOR [Suspect]
     Route: 048
  2. CRESTOR [Suspect]
     Route: 048
  3. METFORMIN HCL [Concomitant]

REACTIONS (18)
  - ALOPECIA [None]
  - CHRONIC OBSTRUCTIVE PULMONARY DISEASE [None]
  - SYSTEMIC LUPUS ERYTHEMATOSUS [None]
  - RETCHING [None]
  - MENINGIOMA [None]
  - HALLUCINATION [None]
  - ENTEROCOLITIS INFECTIOUS [None]
  - WEIGHT DECREASED [None]
  - URINARY TRACT INFECTION [None]
  - MUSCULAR WEAKNESS [None]
  - PNEUMONIA [None]
  - EMPHYSEMA [None]
  - BLOOD CHOLESTEROL INCREASED [None]
  - INTENTIONAL DRUG MISUSE [None]
  - SPINAL CORD NEOPLASM [None]
  - SCLERITIS [None]
  - OSTEOARTHRITIS [None]
  - DIABETES MELLITUS [None]
